FAERS Safety Report 10083350 (Version 1)
Quarter: 2014Q2

REPORT INFORMATION
  Report Type: Spontaneous
  Country: US (occurrence: None)
  Receive Date: 20140416
  Receipt Date: 20140416
  Transmission Date: 20141212
  Serious: Yes (Hospitalization)
  Sender: FDA-Public Use
  Company Number: None

PATIENT
  Age: 59 Year
  Sex: Male
  Weight: 115 kg

DRUGS (15)
  1. WARFARIN [Suspect]
     Indication: PULMONARY EMBOLISM
     Route: 048
     Dates: start: 20131222
  2. KCI [Concomitant]
  3. APAP [Concomitant]
  4. OXYCODONE [Concomitant]
  5. METFORMIN [Concomitant]
  6. NOVOLOG [Concomitant]
  7. ALBUTEROL [Concomitant]
  8. SYMBICORT [Concomitant]
  9. LACTULOSE [Concomitant]
  10. PANTOPRAZOLE [Concomitant]
  11. SINGULAIR [Concomitant]
  12. PREDNISONE [Concomitant]
  13. SPIRONOLACTONE [Concomitant]
  14. GLIPIZIDE [Concomitant]
  15. METOLAZONE [Concomitant]

REACTIONS (6)
  - Muscular weakness [None]
  - Hypoaesthesia [None]
  - Paraesthesia [None]
  - Retroperitoneal haematoma [None]
  - Haemorrhagic anaemia [None]
  - Muscle abscess [None]
